FAERS Safety Report 8399549-9 (Version None)
Quarter: 2012Q2

REPORT INFORMATION
  Report Type: 
  Country: None (occurrence: None)
  Receive Date: 20120531
  Receipt Date: 20120521
  Transmission Date: 20120825
  Serious: Yes (Hospitalization)
  Sender: FDA-Public Use
  Company Number: FR-MERCK-1205FRA00005

PATIENT
  Age: 74 Year
  Sex: Female
  Weight: 51 kg

DRUGS (7)
  1. AMLODIPINE BESYLATE [Concomitant]
     Route: 065
  2. EPOETIN ALFA [Concomitant]
     Route: 051
     Dates: start: 20101001
  3. ATORVASTATIN CALCIUM [Suspect]
     Route: 048
     Dates: start: 20110101, end: 20111003
  4. ACARBOSE [Concomitant]
     Route: 065
  5. PERINDOPRIL ARGININE [Concomitant]
     Route: 065
  6. ATORVASTATIN CALCIUM [Suspect]
     Route: 048
     Dates: start: 20111017, end: 20111028
  7. JANUVIA [Suspect]
     Route: 048
     Dates: end: 20111031

REACTIONS (1)
  - CYTOLYTIC HEPATITIS [None]
